FAERS Safety Report 4518017-5 (Version None)
Quarter: 2004Q4

REPORT INFORMATION
  Report Type: 
  Country: None (occurrence: None)
  Receive Date: 20041130
  Receipt Date: 20041112
  Transmission Date: 20050328
  Serious: Yes (Hospitalization, Other)
  Sender: FDA-Public Use
  Company Number: USA040875852

PATIENT
  Age: 75 Year
  Sex: Female

DRUGS (9)
  1. FORTEO [Suspect]
  2. ADVAIR DISKUS 100/50 [Concomitant]
  3. ALBUTEROL [Concomitant]
  4. DIOVAN [Concomitant]
  5. LOTREL [Concomitant]
  6. ACETYLSALICYLIC ACID SRT [Concomitant]
  7. OSCAL (CALCIUM CARBONATE) [Concomitant]
  8. VICODIN [Concomitant]
  9. MOBIC [Concomitant]

REACTIONS (2)
  - PANCREATITIS ACUTE [None]
  - PNEUMONIA [None]
